FAERS Safety Report 24327612 (Version 3)
Quarter: 2024Q4

REPORT INFORMATION
  Report Type: Spontaneous
  Country: RO (occurrence: RO)
  Receive Date: 20240917
  Receipt Date: 20241113
  Transmission Date: 20250114
  Serious: Yes (Other)
  Sender: ELI LILLY AND COMPANY
  Company Number: RO-JNJFOC-20240904380

PATIENT
  Sex: Female
  Weight: 59 kg

DRUGS (3)
  1. PEMETREXED [Suspect]
     Active Substance: PEMETREXED
     Indication: Non-small cell lung cancer
     Dosage: UNK UNK, UNKNOWN
     Route: 065
     Dates: start: 202408
  2. AMIVANTAMAB [Suspect]
     Active Substance: AMIVANTAMAB
     Indication: Non-small cell lung cancer
     Dosage: 1050 MG, WEEKLY (1/W)
     Route: 042
     Dates: start: 202408
  3. CARBOPLATIN [Suspect]
     Active Substance: CARBOPLATIN
     Indication: Non-small cell lung cancer
     Dosage: UNK UNK, UNKNOWN
     Route: 065
     Dates: start: 202408

REACTIONS (4)
  - Hepatic cytolysis [Unknown]
  - Vertigo [Unknown]
  - Rash [Unknown]
  - Paronychia [Unknown]

NARRATIVE: CASE EVENT DATE: 20240101
